FAERS Safety Report 9174492 (Version 1)
Quarter: 2013Q1

REPORT INFORMATION
  Report Type: Spontaneous
  Country: JP (occurrence: None)
  Receive Date: 20130318
  Receipt Date: 20130318
  Transmission Date: 20140127
  Serious: Yes (Other)
  Sender: FDA-Public Use
  Company Number: 2013P1003082

PATIENT
  Age: 42 Year
  Sex: Male
  Weight: 57.1 kg

DRUGS (5)
  1. FENTANYL [Suspect]
     Indication: PAIN
     Dates: end: 201101
  2. GABAPENTIN [Concomitant]
  3. PREGABALIN [Concomitant]
  4. CLONAZEPAM [Concomitant]
  5. DICLOFENAC SODIUM [Concomitant]

REACTIONS (4)
  - Fatigue [None]
  - Loss of libido [None]
  - Erectile dysfunction [None]
  - Blood pressure decreased [None]
